FAERS Safety Report 4493867-2 (Version None)
Quarter: 2004Q4

REPORT INFORMATION
  Report Type: 
  Country: None (occurrence: None)
  Receive Date: 20041105
  Receipt Date: 20041025
  Transmission Date: 20050328
  Serious: Yes (Other)
  Sender: FDA-Public Use
  Company Number: US-BRISTOL-MYERS SQUIBB COMPANY-12751863

PATIENT
  Sex: Female

DRUGS (3)
  1. CETUXIMAB [Suspect]
     Indication: CARCINOMA
     Dosage: 400 MG/M2 1ST DOSE, THEN 250 MG/M2 WEEKLY FOR 6 CYCLES
  2. PACLITAXEL [Concomitant]
     Indication: CARCINOMA
     Dosage: 175 MG/M2 EVERY 3 WEEKS FOR TOTAL OF 6 CYCLES
  3. CARBOPLATIN [Concomitant]
     Indication: CARCINOMA
     Dosage: ^AUC 6^, EVERY 3 WEEKS FOR TOTAL OF 6 CYCLES

REACTIONS (4)
  - ASTHENIA [None]
  - DIFFICULTY IN WALKING [None]
  - HYPOMAGNESAEMIA [None]
  - NEUROPATHY [None]
